FAERS Safety Report 12172149 (Version 2)
Quarter: 2016Q3

REPORT INFORMATION
  Report Type: Report from Study
  Country: US (occurrence: US)
  Receive Date: 20160311
  Receipt Date: 20160801
  Transmission Date: 20161109
  Serious: Yes (Hospitalization)
  Sender: FDA-Public Use
  Company Number: US-ACTELION-A-NJ2016-132669

PATIENT
  Age: 79 Year
  Sex: Female

DRUGS (2)
  1. TRACLEER [Suspect]
     Active Substance: BOSENTAN
     Indication: PULMONARY ARTERIAL HYPERTENSION
     Dosage: 62.5 MG, BID
     Route: 048
     Dates: start: 20090810
  2. OXYGEN. [Concomitant]
     Active Substance: OXYGEN

REACTIONS (5)
  - Ventricular assist device insertion [Unknown]
  - Procedural complication [Recovered/Resolved]
  - Fall [Unknown]
  - Cerebrovascular accident [Unknown]
  - Oesophageal injury [Recovered/Resolved]

NARRATIVE: CASE EVENT DATE: 201602
